FAERS Safety Report 11405298 (Version 2)
Quarter: 2015Q4

REPORT INFORMATION
  Report Type: Spontaneous
  Country: FR (occurrence: FR)
  Receive Date: 20150821
  Receipt Date: 20151111
  Transmission Date: 20160304
  Serious: Yes (Hospitalization)
  Sender: FDA-Public Use
  Company Number: FR-PFIZER INC-2015273740

PATIENT
  Age: 19 Year
  Sex: Male

DRUGS (6)
  1. PARACETAMOL [Concomitant]
     Active Substance: ACETAMINOPHEN
     Dosage: UNK
     Route: 048
     Dates: start: 20150605
  2. DALACINE [Suspect]
     Active Substance: CLINDAMYCIN HYDROCHLORIDE
     Dosage: 300 MG, 3X/DAY
     Route: 048
     Dates: start: 20150605, end: 20150616
  3. HYDROXYZINE HYDROCHLORIDE. [Concomitant]
     Active Substance: HYDROXYZINE HYDROCHLORIDE
     Dosage: UNK
     Route: 048
     Dates: start: 20150614
  4. CONTRAMAL [Concomitant]
     Active Substance: TRAMADOL HYDROCHLORIDE
     Dosage: UNK
     Route: 048
     Dates: start: 20150527
  5. AMOXICILLIN. [Suspect]
     Active Substance: AMOXICILLIN
     Indication: TONSILLITIS
     Dosage: 1 G, 3X/DAY
     Route: 048
     Dates: start: 20150527, end: 20150602
  6. DESLORATADINE. [Concomitant]
     Active Substance: DESLORATADINE
     Indication: TONSILLITIS
     Dosage: UNK
     Route: 048
     Dates: start: 20150527, end: 20150603

REACTIONS (4)
  - Eosinophilia [Unknown]
  - Oedema peripheral [Recovering/Resolving]
  - Rash erythematous [Recovered/Resolved]
  - Dermatitis exfoliative [Recovering/Resolving]

NARRATIVE: CASE EVENT DATE: 20150604
